FAERS Safety Report 16468440 (Version 1)
Quarter: 2019Q2

REPORT INFORMATION
  Report Type: Spontaneous
  Country: BE (occurrence: BE)
  Receive Date: 20190624
  Receipt Date: 20190624
  Transmission Date: 20190711
  Serious: Yes (Other)
  Sender: FDA-Public Use
  Company Number: BE-EPIC PHARMA LLC-2019EPC00166

PATIENT
  Age: 50 Year
  Sex: Female

DRUGS (1)
  1. AMPHETAMINE [Suspect]
     Active Substance: AMPHETAMINE
     Route: 065

REACTIONS (2)
  - Aortic dissection [Unknown]
  - Tricuspid valve incompetence [Unknown]
